FAERS Safety Report 23219230 (Version 1)
Quarter: 2023Q4

REPORT INFORMATION
  Report Type: Spontaneous
  Country: FR (occurrence: FR)
  Receive Date: 20231122
  Receipt Date: 20231122
  Transmission Date: 20240110
  Serious: Yes (Life-Threatening)
  Sender: FDA-Public Use
  Company Number: FR-PURDUE-USA-2023-0306098

PATIENT
  Age: 75 Year
  Sex: Female
  Weight: 90 kg

DRUGS (4)
  1. OXYCODONE HYDROCHLORIDE [Suspect]
     Active Substance: OXYCODONE HYDROCHLORIDE
     Indication: Procedural pain
     Dosage: 10 MILLIGRAM
     Route: 048
     Dates: start: 20231013, end: 20231013
  2. TRAMADOL [Suspect]
     Active Substance: TRAMADOL\TRAMADOL HYDROCHLORIDE
     Indication: Procedural pain
     Dosage: 100 MG LP 1-0-1
     Route: 048
     Dates: start: 20231010, end: 20231014
  3. ACUPAN [Suspect]
     Active Substance: NEFOPAM HYDROCHLORIDE
     Indication: Procedural pain
     Dosage: 10/10: 1 CP IN THE EVENING AND 1 CP OVERNIGHT 11/10 1 CP IN THE EVENING 12/10 1 CP AT LUNCHTIME
     Route: 048
     Dates: start: 20231010, end: 20231012
  4. GABAPENTIN [Suspect]
     Active Substance: GABAPENTIN
     Indication: Complex regional pain syndrome
     Dosage: 1-1-1
     Route: 048
     Dates: start: 20231012, end: 20231014

REACTIONS (3)
  - Myoclonus [Not Recovered/Not Resolved]
  - Loss of consciousness [Not Recovered/Not Resolved]
  - Hypoxic-ischaemic encephalopathy [Not Recovered/Not Resolved]

NARRATIVE: CASE EVENT DATE: 20231013
